FAERS Safety Report 4490870-3 (Version None)
Quarter: 2004Q4

REPORT INFORMATION
  Report Type: 
  Country: None (occurrence: None)
  Receive Date: 20041027
  Receipt Date: 20041014
  Transmission Date: 20050328
  Serious: Yes (Other)
  Sender: FDA-Public Use
  Company Number: 2004079327

PATIENT
  Age: 61 Year
  Sex: Male
  Weight: 95 kg

DRUGS (5)
  1. DOXAZOSIN MESYLATE [Suspect]
     Indication: ESSENTIAL HYPERTENSION
     Dosage: ORAL
     Route: 048
     Dates: start: 20040812, end: 20041006
  2. SIMVASTATIN [Concomitant]
  3. ATENOLOL [Concomitant]
  4. PERINDOPRIL (PERINDOPRIL) [Concomitant]
  5. MINOXIDIL [Concomitant]

REACTIONS (1)
  - WHEEZING [None]
